FAERS Safety Report 9710648 (Version 2)
Quarter: 2013Q4

REPORT INFORMATION
  Report Type: Spontaneous
  Country: US (occurrence: US)
  Receive Date: 20131126
  Receipt Date: 20131126
  Transmission Date: 20140711
  Serious: No
  Sender: FDA-Public Use
  Company Number: US-BRISTOL-MYERS SQUIBB COMPANY-19001684

PATIENT
  Age: 69 Year
  Sex: Male
  Weight: 102.04 kg

DRUGS (3)
  1. BYDUREON [Suspect]
     Indication: TYPE 2 DIABETES MELLITUS
     Dosage: PRESCRIPTION #:652340
     Route: 058
     Dates: start: 201301
  2. BYETTA [Suspect]
     Dates: start: 20130118
  3. METFORMIN [Concomitant]

REACTIONS (3)
  - Injection site nodule [Recovered/Resolved]
  - Nausea [Recovered/Resolved]
  - Product quality issue [Unknown]
